FAERS Safety Report 9157483 (Version 2)
Quarter: 2013Q3

REPORT INFORMATION
  Report Type: Spontaneous
  Country: FR (occurrence: FR)
  Receive Date: 20130312
  Receipt Date: 20130712
  Transmission Date: 20140515
  Serious: Yes (Other)
  Sender: FDA-Public Use
  Company Number: FR-JNJFOC-20130302681

PATIENT
  Age: 63 Year
  Sex: Male

DRUGS (4)
  1. XARELTO [Suspect]
     Indication: CEREBROVASCULAR ACCIDENT PROPHYLAXIS
     Route: 048
     Dates: start: 20121012, end: 20130212
  2. XARELTO [Suspect]
     Indication: ATRIAL FIBRILLATION
     Route: 048
     Dates: start: 20121012, end: 20130212
  3. SINTROM [Concomitant]
     Route: 065
  4. CORDARONE [Concomitant]
     Dosage: 2 TABLETS 200 MG/DAY 5 OUT OF 7 DAYS = 10 TABLETS/WEEK
     Route: 065
     Dates: start: 201004, end: 20130212

REACTIONS (6)
  - Alanine aminotransferase increased [Recovered/Resolved]
  - Hyperthyroidism [Unknown]
  - Blood alkaline phosphatase increased [Recovered/Resolved]
  - Gamma-glutamyltransferase increased [Recovered/Resolved]
  - Aspartate aminotransferase increased [Recovered/Resolved]
  - Drug-induced liver injury [Unknown]
